FAERS Safety Report 9186945 (Version 2)
Quarter: 2013Q2

REPORT INFORMATION
  Report Type: Spontaneous
  Country: US (occurrence: US)
  Receive Date: 20130325
  Receipt Date: 20130529
  Transmission Date: 20140414
  Serious: Yes (Other)
  Sender: FDA-Public Use
  Company Number: US-PFIZER INC-2013093037

PATIENT
  Age: 47 Year
  Sex: Male

DRUGS (3)
  1. CHANTIX [Suspect]
     Dosage: 1 MG CONTINUING MONTH PAK
     Dates: start: 20090130
  2. CHANTIX [Suspect]
     Dosage: 1 MG CONTINUING MONTH PAK
     Dates: start: 20090710, end: 20090810
  3. TRAZODONE [Concomitant]
     Indication: SLEEP DISORDER
     Dosage: 100 MG, 1X/DAY (AT BED TIME)

REACTIONS (1)
  - Suicidal ideation [Unknown]
